FAERS Safety Report 9464167 (Version 2)
Quarter: 2013Q4

REPORT INFORMATION
  Report Type: Report from Study
  Country: CA (occurrence: CA)
  Receive Date: 20130819
  Receipt Date: 20131202
  Transmission Date: 20140711
  Serious: Yes (Death)
  Sender: FDA-Public Use
  Company Number: CA-SANOFI-AVENTIS-2013SA082713

PATIENT
  Age: 80 Year
  Sex: 0

DRUGS (5)
  1. OXALIPLATIN [Suspect]
     Indication: COLORECTAL CANCER
     Route: 065
     Dates: start: 2012, end: 2012
  2. AVASTIN [Suspect]
     Indication: COLORECTAL CANCER
     Dosage: FORM- SOLUTION INTRAVENOUS
     Route: 065
     Dates: start: 2012, end: 2012
  3. FLUOROURACIL [Suspect]
     Indication: COLORECTAL CANCER
     Route: 065
     Dates: start: 2012, end: 2012
  4. XELODA [Suspect]
     Indication: COLORECTAL CANCER
     Route: 065
     Dates: start: 2012, end: 2012
  5. FOLINIC ACID [Suspect]
     Indication: COLORECTAL CANCER
     Route: 065
     Dates: start: 2012, end: 2012

REACTIONS (1)
  - Disease progression [Fatal]
